FAERS Safety Report 7282283-6 (Version None)
Quarter: 2011Q1

REPORT INFORMATION
  Report Type: 
  Country: None (occurrence: None)
  Receive Date: 20110209
  Receipt Date: 20110128
  Transmission Date: 20110831
  Serious: Yes (Other)
  Sender: FDA-Public Use
  Company Number: PL-TEVA-265573ISR

PATIENT
  Sex: Female
  Weight: 74.5 kg

DRUGS (1)
  1. DACARBAZINE [Suspect]
     Indication: MALIGNANT MELANOMA
     Route: 042
     Dates: start: 20110120, end: 20110120

REACTIONS (4)
  - HYPERTENSION [None]
  - TREMOR [None]
  - TACHYCARDIA [None]
  - TACHYPNOEA [None]
